FAERS Safety Report 14945909 (Version 1)
Quarter: 2018Q2

REPORT INFORMATION
  Report Type: Report from Study
  Country: US (occurrence: US)
  Receive Date: 20180529
  Receipt Date: 20180529
  Transmission Date: 20180711
  Serious: Yes (Other)
  Sender: FDA-Public Use
  Company Number: US-CIPLA LTD.-2018US18279

PATIENT

DRUGS (2)
  1. VELIPARIB [Suspect]
     Active Substance: VELIPARIB
     Indication: NEOPLASM MALIGNANT
     Dosage: 10 MG, CYCLE-1: DAYS 2 TO 5, CYCLE-2: DAYS 1 TO 5
     Route: 048
  2. TOPOTECAN [Suspect]
     Active Substance: TOPOTECAN HYDROCHLORIDE
     Indication: NEOPLASM MALIGNANT
     Dosage: 0.6 MG/M2, CYCLE-1: DAYS 1 TO 5, CYCLE-2: DAYS 1 TO 5
     Route: 042

REACTIONS (1)
  - Malignant neoplasm progression [Unknown]
